FAERS Safety Report 9474958 (Version 1)
Quarter: 2013Q3

REPORT INFORMATION
  Report Type: Spontaneous
  Country: US (occurrence: None)
  Receive Date: 20130822
  Receipt Date: 20130822
  Transmission Date: 20140515
  Serious: Yes (Life-Threatening, Hospitalization)
  Sender: FDA-Public Use
  Company Number: None

PATIENT
  Age: 46 Year
  Sex: Female
  Weight: 68.04 kg

DRUGS (1)
  1. ROCEPHIN [Suspect]
     Indication: SINUSITIS
     Dosage: INTO THE MUSCLE
     Route: 030
     Dates: start: 20130314, end: 20130314

REACTIONS (3)
  - Anaphylactic reaction [None]
  - Road traffic accident [None]
  - Loss of consciousness [None]
